FAERS Safety Report 8533360-0 (Version None)
Quarter: 2012Q3

REPORT INFORMATION
  Report Type: 
  Country: None (occurrence: None)
  Receive Date: 20120724
  Receipt Date: 20120709
  Transmission Date: 20120928
  Serious: Yes (Other)
  Sender: FDA-Public Use
  Company Number: PHHY2012FR060057

PATIENT
  Sex: Male

DRUGS (3)
  1. TASIGNA [Suspect]
     Indication: CHRONIC MYELOID LEUKAEMIA
     Dosage: 400 MG, BID
     Route: 048
     Dates: start: 20110201
  2. IMATINIB MESYLATE [Suspect]
     Dosage: 600 MG, DAILY
     Dates: start: 20091101, end: 20110201
  3. IMATINIB MESYLATE [Suspect]
     Indication: CHRONIC MYELOID LEUKAEMIA
     Dosage: 400 MG, DAILY
     Dates: start: 20080901, end: 20091101

REACTIONS (2)
  - NEOPLASM MALIGNANT [None]
  - SQUAMOUS CELL CARCINOMA [None]
